FAERS Safety Report 9620198 (Version 1)
Quarter: 2013Q4

REPORT INFORMATION
  Report Type: Report from Study
  Country: BR (occurrence: BR)
  Receive Date: 20131014
  Receipt Date: 20131014
  Transmission Date: 20140711
  Serious: Yes (Other)
  Sender: FDA-Public Use
  Company Number: PHHY2013BR114841

PATIENT
  Sex: Male
  Weight: 67 kg

DRUGS (3)
  1. RASILEZ HCT [Suspect]
     Indication: HYPERTENSION
     Dosage: 2 DF (ALIS 300MG, HCTZ 12.5 MG), DAILY
     Route: 048
  2. GARDENAL [Concomitant]
     Indication: CEREBROVASCULAR ACCIDENT
     Dosage: 2 DF (100MG) DAILY
     Route: 048
  3. ANTIBIOTICS [Concomitant]
     Dosage: UNK UKN, UNK

REACTIONS (3)
  - Cerebrovascular accident [Recovering/Resolving]
  - Nervousness [Unknown]
  - Hypertension [Unknown]
